FAERS Safety Report 11555202 (Version 1)
Quarter: 2015Q3

REPORT INFORMATION
  Report Type: Spontaneous
  Country: US (occurrence: US)
  Receive Date: 20150903
  Receipt Date: 20150903
  Transmission Date: 20151125
  Serious: No
  Sender: FDA-Public Use
  Company Number: US-ELI_LILLY_AND_COMPANY-US201010002341

PATIENT
  Sex: Female
  Weight: 91 kg

DRUGS (3)
  1. LANTUS [Concomitant]
     Active Substance: INSULIN GLARGINE
     Dosage: UNK, UNK
     Route: 058
     Dates: start: 2007, end: 2009
  2. HUMALOG [Suspect]
     Active Substance: INSULIN LISPRO
     Indication: TYPE 1 DIABETES MELLITUS
     Dosage: UNK, UNK
     Dates: start: 2007, end: 2009
  3. GLUCAGON. [Concomitant]
     Active Substance: GLUCAGON
     Dates: start: 2008

REACTIONS (1)
  - Diabetes mellitus inadequate control [Recovered/Resolved]
